FAERS Safety Report 5887442-2 (Version None)
Quarter: 2008Q3

REPORT INFORMATION
  Report Type: 
  Country: None (occurrence: None)
  Receive Date: 20080918
  Receipt Date: 20080918
  Transmission Date: 20090109
  Serious: Yes (Other)
  Sender: FDA-Public Use
  Company Number: None

PATIENT
  Sex: Female
  Weight: 50 kg

DRUGS (1)
  1. HEPARIN [Suspect]
     Dates: start: 20080909, end: 20080912

REACTIONS (2)
  - PLATELET AGGREGATION [None]
  - THROMBOCYTOPENIA [None]
